FAERS Safety Report 5525247-2 (Version None)
Quarter: 2007Q4

REPORT INFORMATION
  Report Type: 
  Country: None (occurrence: None)
  Receive Date: 20071126
  Receipt Date: 20071121
  Transmission Date: 20080405
  Serious: Yes (Death, Other)
  Sender: FDA-Public Use
  Company Number: JP-BRISTOL-MYERS SQUIBB COMPANY-13972617

PATIENT
  Age: 7 Decade
  Sex: Female

DRUGS (13)
  1. ENDOXAN [Suspect]
     Indication: LYMPHOMA
  2. IFOMIDE [Suspect]
     Indication: LYMPHOMA
  3. ETOPOSIDE [Suspect]
     Indication: LYMPHOMA
  4. DOXORUBICIN HCL [Suspect]
     Indication: LYMPHOMA
  5. CARBOPLATIN [Suspect]
  6. METHOTREXATE [Suspect]
  7. CYTARABINE [Suspect]
  8. MITOXANTRONE [Suspect]
  9. RADIOTHERAPY [Suspect]
  10. GRANULOCYTE CSF [Suspect]
  11. METHYLPREDNISOLONE [Concomitant]
  12. ONCOVIN [Concomitant]
  13. BLEOMYCIN [Concomitant]

REACTIONS (2)
  - HAEMATOTOXICITY [None]
  - SEPSIS [None]
